FAERS Safety Report 5371216-5 (Version None)
Quarter: 2007Q2

REPORT INFORMATION
  Report Type: 
  Country: None (occurrence: None)
  Receive Date: 20070615
  Receipt Date: 20070202
  Transmission Date: 20071010
  Serious: Yes (Other)
  Sender: FDA-Public Use
  Company Number: 200710717US

PATIENT
  Age: 59 Year
  Sex: Female

DRUGS (25)
  1. LANTUS [Suspect]
     Indication: DIABETES MELLITUS
     Dosage: 65 U AM+PM
     Dates: start: 20060101
  2. ASPIRIN [Concomitant]
  3. ATORVASTATIN CALCIUM (LIPITOR) [Concomitant]
  4. INSULIN HUMAN (NOVOLIN R) [Concomitant]
  5. TRIAMCINOLONE HEXACETONIDE (TRIAMCINOLONE CREAM) [Concomitant]
  6. ACYCLOVIR /00587301/ [Concomitant]
  7. POTASSIUM CHLORIDE [Concomitant]
  8. OMEPRAZOLE (PRILOSEC /00661201/) [Concomitant]
  9. ISOSORBIDE MONONITRATE [Concomitant]
  10. FUROSEMIDE [Concomitant]
  11. DIAZEPAM [Concomitant]
  12. CITALOPRAM HYDROBROMIDE [Concomitant]
  13. NIACIN [Concomitant]
  14. AMFEBUTAMONE [Concomitant]
  15. LYRICA [Concomitant]
  16. LORATADINE (LORATADIN) [Concomitant]
  17. DILTIAZEM [Concomitant]
  18. COZAAR [Concomitant]
  19. PIOGLITAZONE [Concomitant]
  20. PENTOXIFYLLINE [Concomitant]
  21. HYDRALAZINE HCL [Concomitant]
  22. METOCLOPRAMIDE [Concomitant]
  23. PARACETAMOL, OXYCODONE HYDROCHLORIDE (ROXICET) [Concomitant]
  24. FENTANYL (DURAGESIC /00174601/) [Concomitant]
  25. TOPROL-XL [Concomitant]

REACTIONS (10)
  - ALOPECIA [None]
  - BLISTER [None]
  - BLOOD GLUCOSE FLUCTUATION [None]
  - GLYCOSYLATED HAEMOGLOBIN INCREASED [None]
  - HYPERGLYCAEMIA [None]
  - HYPOGLYCAEMIA [None]
  - MICTURITION URGENCY [None]
  - NIGHT SWEATS [None]
  - PRURITUS [None]
  - URINE FLOW DECREASED [None]
